FAERS Safety Report 8491121-5 (Version None)
Quarter: 2012Q3

REPORT INFORMATION
  Report Type: 
  Country: None (occurrence: None)
  Receive Date: 20120706
  Receipt Date: 20120702
  Transmission Date: 20120928
  Serious: Yes (Hospitalization)
  Sender: FDA-Public Use
  Company Number: US-BAYER-2012-066293

PATIENT
  Age: 37 Year
  Sex: Female
  Weight: 69.388 kg

DRUGS (5)
  1. MUCINEX D [Concomitant]
     Dosage: UNK UNK, PRN
     Dates: start: 20111103
  2. DROSPIRENONE AND ETHINYL ESTRADIOL [Suspect]
  3. CIPROFLOXACIN [Concomitant]
     Dosage: 500 MG, BID
     Route: 048
     Dates: start: 20110913
  4. CEPHALEXIN [Concomitant]
     Dosage: 500 MG, TID AFTER FOOD
     Route: 048
     Dates: start: 20111103
  5. YASMIN [Suspect]

REACTIONS (1)
  - DEEP VEIN THROMBOSIS [None]
